FAERS Safety Report 12675219 (Version 1)
Quarter: 2016Q3

REPORT INFORMATION
  Report Type: Spontaneous
  Country: HK (occurrence: HK)
  Receive Date: 20160822
  Receipt Date: 20160822
  Transmission Date: 20161109
  Serious: Yes (Other)
  Sender: FDA-Public Use
  Company Number: HK-ABBVIE-16P-075-1707334-00

PATIENT
  Age: 48 Year
  Sex: Female

DRUGS (3)
  1. TOPIRAMATE. [Suspect]
     Active Substance: TOPIRAMATE
     Indication: SEIZURE
     Route: 065
  2. VALPROIC ACID. [Suspect]
     Active Substance: VALPROIC ACID
     Indication: SEIZURE
     Route: 065
  3. TOPIRAMATE. [Suspect]
     Active Substance: TOPIRAMATE
     Route: 065

REACTIONS (5)
  - Retinitis pigmentosa [Not Recovered/Not Resolved]
  - Visual acuity reduced [Recovering/Resolving]
  - Toxicity to various agents [Not Recovered/Not Resolved]
  - Vision blurred [Unknown]
  - Visual field defect [Recovering/Resolving]
